FAERS Safety Report 8013864-X (Version None)
Quarter: 2011Q4

REPORT INFORMATION
  Report Type: 
  Country: None (occurrence: None)
  Receive Date: 20111229
  Receipt Date: 20111228
  Transmission Date: 20120403
  Serious: Yes (Other)
  Sender: FDA-Public Use
  Company Number: CN-ROCHE-1025743

PATIENT
  Age: 43 Year
  Sex: Female
  Weight: 66 kg

DRUGS (6)
  1. CHINESE TRADITIONAL MEDICINE NOS [Concomitant]
     Indication: BREAST CANCER
     Route: 048
  2. TAXOL [Concomitant]
     Indication: BREAST CANCER
     Route: 041
     Dates: start: 20111001, end: 20111101
  3. HERCEPTIN [Suspect]
     Route: 041
     Dates: start: 20111122, end: 20111122
  4. HERCEPTIN [Suspect]
     Indication: BREAST CANCER
     Dosage: FIRST DOSE
     Route: 041
     Dates: start: 20111101, end: 20111101
  5. HERCEPTIN [Suspect]
     Route: 041
     Dates: start: 20111201
  6. LENTINAN [Concomitant]
     Indication: IMMUNE ENHANCEMENT THERAPY

REACTIONS (4)
  - MYOCARDIAL ISCHAEMIA [None]
  - WHITE BLOOD CELL COUNT DECREASED [None]
  - CHEST DISCOMFORT [None]
  - CHOKING SENSATION [None]
